FAERS Safety Report 9624244 (Version 3)
Quarter: 2014Q2

REPORT INFORMATION
  Report Type: Spontaneous
  Country: US (occurrence: US)
  Receive Date: 20131015
  Receipt Date: 20140630
  Transmission Date: 20141212
  Serious: Yes (Other)
  Sender: FDA-Public Use
  Company Number: US-PFIZER INC-2013292160

PATIENT
  Age: 69 Year
  Sex: Female

DRUGS (7)
  1. LIPITOR [Suspect]
     Indication: LOW DENSITY LIPOPROTEIN INCREASED
     Dosage: UNK
     Route: 048
     Dates: start: 20030512, end: 20120710
  2. LIPITOR [Suspect]
     Indication: CARDIOVASCULAR EVENT PROPHYLAXIS
  3. ATORVASTATIN CALCIUM [Suspect]
     Dosage: UNK
  4. SYNTHROID [Concomitant]
     Dosage: UNK
     Dates: start: 1979
  5. MULTIVITAMINS [Concomitant]
     Dosage: UNK
     Dates: start: 1980
  6. CYMBALTA [Concomitant]
     Dosage: UNK
     Dates: start: 200707, end: 201010
  7. ACIPHEX [Concomitant]
     Dosage: UNK
     Dates: start: 200902

REACTIONS (1)
  - Type 2 diabetes mellitus [Not Recovered/Not Resolved]
